FAERS Safety Report 23504948 (Version 1)
Quarter: 2024Q1

REPORT INFORMATION
  Report Type: Spontaneous
  Country: GB (occurrence: GB)
  Receive Date: 20240209
  Receipt Date: 20240209
  Transmission Date: 20240409
  Serious: No
  Sender: FDA-Public Use
  Company Number: None

PATIENT
  Age: 47 Year
  Sex: Female
  Weight: 70 kg

DRUGS (10)
  1. GABAPENTIN [Suspect]
     Active Substance: GABAPENTIN
     Indication: Product used for unknown indication
     Dosage: TID, (TAKE ONE 3 TIMES PER DAY)
     Route: 065
     Dates: start: 20220120
  2. AMITRIPTYLINE HYDROCHLORIDE [Concomitant]
     Active Substance: AMITRIPTYLINE HYDROCHLORIDE
     Indication: Product used for unknown indication
     Dosage: 2 DOSAGE FORM, HS
     Route: 065
     Dates: start: 20220104
  3. BACLOFEN [Concomitant]
     Active Substance: BACLOFEN
     Indication: Product used for unknown indication
     Dosage: UNK (TAKE HALF TABLET ONE IN THE MORNING FOR ONE WEEK)
     Route: 065
     Dates: start: 20220317
  4. BUTYLSCOPOLAMINE BROMIDE [Concomitant]
     Active Substance: BUTYLSCOPOLAMINE BROMIDE
     Indication: Product used for unknown indication
     Dosage: UNK, BID (TAKE TWO TWICE DAILY)
     Route: 065
     Dates: start: 20220224
  5. LANSOPRAZOLE [Concomitant]
     Active Substance: LANSOPRAZOLE
     Indication: Product used for unknown indication
     Dosage: UNK, QD (TAKE ONE DAILY)
     Route: 065
     Dates: start: 20220104
  6. MIRABEGRON [Concomitant]
     Active Substance: MIRABEGRON
     Indication: Product used for unknown indication
     Dosage: UNK, QD (TAKE ONE DAILY)
     Route: 065
     Dates: start: 20220104
  7. MOVICOL [Concomitant]
     Active Substance: POLYETHYLENE GLYCOL 3350\POTASSIUM CHLORIDE\SODIUM BICARBONATE\SODIUM CHLORIDE
     Indication: Product used for unknown indication
     Dosage: UNK (USE AS DIRECTED)
     Route: 065
     Dates: start: 20220712
  8. PREGABALIN [Concomitant]
     Active Substance: PREGABALIN
     Indication: Product used for unknown indication
     Dosage: UNK, BID (TAKE ONE TWICE DAILY)
     Route: 065
     Dates: start: 20220714
  9. RAMIPRIL [Concomitant]
     Active Substance: RAMIPRIL
     Indication: Product used for unknown indication
     Dosage: UNK, QD (TAKE ONE DAILY)
     Route: 065
     Dates: start: 20211116
  10. TROSPIUM CHLORIDE [Concomitant]
     Active Substance: TROSPIUM CHLORIDE
     Indication: Product used for unknown indication
     Dosage: UNK, QD (TAKE ONE DAILY)
     Route: 065
     Dates: start: 20220405

REACTIONS (1)
  - Joint swelling [Recovering/Resolving]
